FAERS Safety Report 11127706 (Version 1)
Quarter: 2015Q2

REPORT INFORMATION
  Report Type: Report from Study
  Country: US (occurrence: None)
  Receive Date: 20150519
  Receipt Date: 20150519
  Transmission Date: 20150821
  Serious: Yes (Hospitalization)
  Sender: FDA-Public Use
  Company Number: US-001940N

PATIENT
  Age: 61 Year
  Sex: Female

DRUGS (2)
  1. GATTEX [Suspect]
     Active Substance: TEDUGLUTIDE\WATER
     Indication: SHORT-BOWEL SYNDROME
     Dosage: DF SUBCUTANEOUS
     Route: 058
     Dates: start: 20150404
  2. SOLUTIONS FOR PARENTERAL NUTRITION ?? [Concomitant]

REACTIONS (2)
  - Malaise [None]
  - Hospitalisation [None]

NARRATIVE: CASE EVENT DATE: 20150501
